FAERS Safety Report 10657352 (Version 1)
Quarter: 2014Q4

REPORT INFORMATION
  Report Type: Spontaneous
  Country: CA (occurrence: None)
  Receive Date: 20141215
  Receipt Date: 20141215
  Transmission Date: 20150529
  Serious: Yes (Other)
  Sender: FDA-Public Use
  Company Number: 2014335517

PATIENT
  Age: 77 Year
  Sex: Female
  Weight: 52 kg

DRUGS (5)
  1. IRINOTECAN HCL (IRINOTECAN HCL) (IRINOTECAN HCL) [Suspect]
     Active Substance: IRINOTECAN HYDROCHLORIDE
     Route: 042
  2. FRAGMIN [Suspect]
     Active Substance: DALTEPARIN SODIUM
     Route: 058
  3. FLUOROURACIL. [Suspect]
     Active Substance: FLUOROURACIL
     Route: 042
  4. AVASTIN [Suspect]
     Active Substance: BEVACIZUMAB
     Route: 042
  5. LEUCOVORIN CALCIUM. [Suspect]
     Active Substance: LEUCOVORIN CALCIUM
     Route: 042

REACTIONS (10)
  - Stomatitis [None]
  - Abdominal distension [None]
  - Heparin-induced thrombocytopenia [None]
  - Pancytopenia [None]
  - Febrile neutropenia [None]
  - Venous pressure jugular decreased [None]
  - Abdominal pain [None]
  - Constipation [None]
  - Haemoglobin decreased [None]
  - Diarrhoea [None]
